FAERS Safety Report 12326991 (Version 2)
Quarter: 2016Q2

REPORT INFORMATION
  Report Type: Spontaneous
  Country: FR (occurrence: FR)
  Receive Date: 20160503
  Receipt Date: 20160511
  Transmission Date: 20160815
  Serious: Yes (Other)
  Sender: FDA-Public Use
  Company Number: FR-ALLERGAN-1655321US

PATIENT
  Age: 40 Year
  Sex: Male

DRUGS (1)
  1. OZURDEX [Suspect]
     Active Substance: DEXAMETHASONE
     Indication: UVEITIS
     Dosage: 0.7 MG, SINGLE
     Route: 031

REACTIONS (2)
  - Vitreous haemorrhage [Unknown]
  - Retinal detachment [Unknown]
